FAERS Safety Report 6641522-2 (Version None)
Quarter: 2010Q1

REPORT INFORMATION
  Report Type: 
  Country: None (occurrence: None)
  Receive Date: 20100317
  Receipt Date: 20100317
  Transmission Date: 20100710
  Serious: Yes (Other)
  Sender: FDA-Public Use
  Company Number: None

PATIENT
  Age: 86 Year
  Sex: Female
  Weight: 81.6 kg

DRUGS (8)
  1. OXYCODONE HCL EXTENDED-RELEASE [Suspect]
     Indication: PAIN
     Dosage: 20 MG Q12HOURS PO
     Route: 048
     Dates: start: 20100111
  2. WARFARIN SODIUM [Concomitant]
  3. AMLODIPINE [Concomitant]
  4. GABAPENTIN [Concomitant]
  5. GLIPIZIDE [Concomitant]
  6. ISMN [Concomitant]
  7. METOPROLOL TARTRATE [Concomitant]
  8. PROCHLOROPERAZINE [Concomitant]

REACTIONS (4)
  - DEPRESSED LEVEL OF CONSCIOUSNESS [None]
  - DISORIENTATION [None]
  - DYSARTHRIA [None]
  - SOMNOLENCE [None]
